FAERS Safety Report 5148458-7 (Version None)
Quarter: 2006Q4

REPORT INFORMATION
  Report Type: 
  Country: None (occurrence: None)
  Receive Date: 20061110
  Receipt Date: 20061018
  Transmission Date: 20070319
  Serious: Yes (Other)
  Sender: FDA-Public Use
  Company Number: JP-MERCK-0611USA01720

PATIENT
  Age: 87 Year
  Sex: Male
  Weight: 47 kg

DRUGS (3)
  1. FOSAMAX [Suspect]
     Indication: OSTEOPOROSIS
     Route: 048
     Dates: start: 20060926, end: 20061003
  2. ELCATONIN [Concomitant]
     Indication: OSTEOPOROSIS
     Route: 030
     Dates: start: 20060104
  3. KETOPROFEN [Concomitant]
     Indication: BACK PAIN
     Route: 061
     Dates: start: 20051226

REACTIONS (2)
  - ARTHRITIS [None]
  - BACK PAIN [None]
